FAERS Safety Report 26171275 (Version 1)
Quarter: 2025Q4

REPORT INFORMATION
  Report Type: Spontaneous
  Country: EU (occurrence: EU)
  Receive Date: 20251217
  Receipt Date: 20251217
  Transmission Date: 20260118
  Serious: Yes (Other)
  Sender: GUERBET
  Company Number: None

PATIENT
  Age: 40 Year
  Sex: Female

DRUGS (1)
  1. IOVERSOL [Suspect]
     Active Substance: IOVERSOL
     Indication: Computerised tomogram
     Route: 042
     Dates: start: 202301, end: 202301

REACTIONS (5)
  - Throat irritation [Recovered/Resolved]
  - Pruritus [Recovered/Resolved]
  - Gastrointestinal disorder [Recovered/Resolved]
  - Loss of consciousness [Recovered/Resolved]
  - Rebound effect [Recovered/Resolved]

NARRATIVE: CASE EVENT DATE: 20230101
